FAERS Safety Report 4978781-8 (Version None)
Quarter: 2006Q2

REPORT INFORMATION
  Report Type: 
  Country: None (occurrence: None)
  Receive Date: 20060420
  Receipt Date: 20050112
  Transmission Date: 20061013
  Serious: Yes (Hospitalization, Disabling, Other)
  Sender: FDA-Public Use
  Company Number: US-MERCK-0501USA01891

PATIENT
  Age: 39 Year
  Sex: Female
  Weight: 109 kg

DRUGS (2)
  1. VIOXX [Suspect]
     Indication: ARTHRITIS
     Route: 048
     Dates: start: 20020601, end: 20030201
  2. VIOXX [Suspect]
     Indication: COSTOCHONDRITIS
     Route: 048
     Dates: start: 20020601, end: 20030201

REACTIONS (8)
  - ANGIOPATHY [None]
  - BACK PAIN [None]
  - CARDIOVASCULAR DISORDER [None]
  - CEREBROVASCULAR ACCIDENT [None]
  - DEEP VEIN THROMBOSIS [None]
  - MIGRAINE [None]
  - THROMBOSIS [None]
  - VASCULAR INJURY [None]
